FAERS Safety Report 23959665 (Version 5)
Quarter: 2025Q2

REPORT INFORMATION
  Report Type: Spontaneous
  Country: GB (occurrence: GB)
  Receive Date: 20240611
  Receipt Date: 20250401
  Transmission Date: 20250716
  Serious: Yes (Congenital Anomaly, Other)
  Sender: SANDOZ
  Company Number: GB-MLMSERVICE-20240517-PI059713-00270-2

PATIENT
  Sex: Female
  Weight: 1 kg

DRUGS (29)
  1. CEFUROXIME [Suspect]
     Active Substance: CEFUROXIME
     Route: 064
  2. CEFUROXIME [Suspect]
     Active Substance: CEFUROXIME
     Indication: Product used for unknown indication
     Route: 042
  3. CEFUROXIME [Suspect]
     Active Substance: CEFUROXIME
     Route: 064
  4. CYCLOPHOSPHAMIDE [Suspect]
     Active Substance: CYCLOPHOSPHAMIDE
     Route: 065
  5. CYCLOPHOSPHAMIDE [Suspect]
     Active Substance: CYCLOPHOSPHAMIDE
     Indication: Anti-glomerular basement membrane disease
     Route: 065
  6. CYCLOPHOSPHAMIDE [Suspect]
     Active Substance: CYCLOPHOSPHAMIDE
     Route: 064
  7. METHYLPREDNISOLONE [Suspect]
     Active Substance: METHYLPREDNISOLONE
     Indication: Anti-glomerular basement membrane disease
     Route: 065
  8. PREDNISOLONE [Suspect]
     Active Substance: PREDNISOLONE
     Route: 065
  9. PREDNISOLONE [Suspect]
     Active Substance: PREDNISOLONE
     Route: 065
  10. PREDNISOLONE [Suspect]
     Active Substance: PREDNISOLONE
     Route: 048
  11. PREDNISOLONE [Suspect]
     Active Substance: PREDNISOLONE
     Indication: Anti-glomerular basement membrane disease
     Route: 048
  12. RITUXIMAB [Suspect]
     Active Substance: RITUXIMAB
     Indication: Anti-glomerular basement membrane disease
     Route: 065
  13. RITUXIMAB [Suspect]
     Active Substance: RITUXIMAB
     Route: 064
  14. ACYCLOVIR [Concomitant]
     Active Substance: ACYCLOVIR
     Indication: Prophylaxis
     Route: 065
  15. ACYCLOVIR [Concomitant]
     Active Substance: ACYCLOVIR
     Route: 064
  16. ACYCLOVIR [Concomitant]
     Active Substance: ACYCLOVIR
     Route: 064
  17. CEFUROXIME [Concomitant]
     Active Substance: CEFUROXIME
     Indication: Product used for unknown indication
     Route: 065
  18. IRON [Concomitant]
     Active Substance: IRON
     Indication: Product used for unknown indication
     Route: 042
  19. IRON [Concomitant]
     Active Substance: IRON
     Route: 064
  20. IRON [Concomitant]
     Active Substance: IRON
     Route: 064
  21. OXYGEN [Concomitant]
     Active Substance: OXYGEN
     Indication: Product used for unknown indication
     Route: 065
  22. OXYGEN [Concomitant]
     Active Substance: OXYGEN
     Route: 064
  23. OXYGEN [Concomitant]
     Active Substance: OXYGEN
     Route: 064
  24. TAZOBACTAM [Concomitant]
     Active Substance: TAZOBACTAM
     Indication: Antibiotic therapy
     Route: 065
  25. TAZOBACTAM [Concomitant]
     Active Substance: TAZOBACTAM
     Route: 064
  26. TAZOBACTAM [Concomitant]
     Active Substance: TAZOBACTAM
     Route: 064
  27. VALGANCICLOVIR [Concomitant]
     Active Substance: VALGANCICLOVIR
     Indication: Cytomegalovirus infection reactivation
     Route: 065
  28. VALGANCICLOVIR [Concomitant]
     Active Substance: VALGANCICLOVIR
     Route: 064
  29. VALGANCICLOVIR [Concomitant]
     Active Substance: VALGANCICLOVIR
     Route: 064

REACTIONS (7)
  - Congenital cytomegalovirus infection [Recovered/Resolved]
  - Deafness congenital [Recovered/Resolved]
  - Premature baby [Unknown]
  - Deafness neurosensory [Recovered/Resolved]
  - Foetal growth restriction [Unknown]
  - Low birth weight baby [Unknown]
  - Foetal exposure during pregnancy [Unknown]
